FAERS Safety Report 4519779-3 (Version None)
Quarter: 2004Q4

REPORT INFORMATION
  Report Type: 
  Country: None (occurrence: None)
  Receive Date: 20041202
  Receipt Date: 20041202
  Transmission Date: 20050328
  Serious: Yes (Other)
  Sender: FDA-Public Use
  Company Number: None

PATIENT
  Sex: Female

DRUGS (1)
  1. DILANTIN [Suspect]
     Dosage: 100 MGM 2-2, 2-2 1-2 ALT Q 3 DAYS/LIFETIME

REACTIONS (3)
  - BLOOD DISORDER [None]
  - CONVULSION [None]
  - LABORATORY TEST ABNORMAL [None]
